FAERS Safety Report 4329224-9 (Version None)
Quarter: 2004Q1

REPORT INFORMATION
  Report Type: 
  Country: None (occurrence: None)
  Receive Date: 20040331
  Receipt Date: 20040331
  Transmission Date: 20041129
  Serious: Yes (Hospitalization)
  Sender: FDA-Public Use
  Company Number: None

PATIENT
  Age: 51 Year
  Sex: Female
  Weight: 117.028 kg

DRUGS (9)
  1. GEMCITABINE [Suspect]
     Dosage: 1000 MG/M2
     Dates: start: 20040324
  2. CARBOPLATIN [Suspect]
     Dosage: AUC 5
     Dates: start: 20040324
  3. PROTONIX [Concomitant]
  4. LISINOPRIL [Concomitant]
  5. COMPAZINE [Concomitant]
  6. SYNTHROID [Concomitant]
  7. PYRIDIUM [Concomitant]
  8. NORVASC [Concomitant]
  9. DITROPAN [Concomitant]

REACTIONS (7)
  - HYPOAESTHESIA [None]
  - ILIAC ARTERY STENOSIS [None]
  - LIVEDO RETICULARIS [None]
  - PAIN IN EXTREMITY [None]
  - PULSE ABSENT [None]
  - SKIN DISCOLOURATION [None]
  - VASCULAR OCCLUSION [None]
